FAERS Safety Report 5225241-5 (Version None)
Quarter: 2007Q1

REPORT INFORMATION
  Report Type: 
  Country: None (occurrence: None)
  Receive Date: 20070131
  Receipt Date: 20070123
  Transmission Date: 20070707
  Serious: Yes (Hospitalization)
  Sender: FDA-Public Use
  Company Number: US-JNJFOC-20070106485

PATIENT
  Sex: Female
  Weight: 49.9 kg

DRUGS (9)
  1. TOPAMAX [Suspect]
     Indication: CONVULSION
     Route: 048
  2. ELAVIL [Concomitant]
     Indication: DEPRESSION
     Route: 048
  3. EFFEXOR [Concomitant]
     Indication: DEPRESSION
     Route: 048
  4. LANOXIN [Concomitant]
     Indication: CARDIAC DISORDER
     Route: 048
  5. CARDIAZEM [Concomitant]
     Indication: CARDIAC DISORDER
     Route: 048
  6. LASIX [Concomitant]
     Indication: CARDIAC FAILURE CONGESTIVE
  7. KLOR-CON [Concomitant]
     Indication: MINERAL SUPPLEMENTATION
  8. POTASSIUM CHLORIDE [Concomitant]
     Indication: MINERAL SUPPLEMENTATION
  9. DILANTIN [Concomitant]
     Indication: CONVULSION

REACTIONS (3)
  - HEADACHE [None]
  - HEART RATE IRREGULAR [None]
  - OEDEMA PERIPHERAL [None]
